FAERS Safety Report 9837975 (Version 2)
Quarter: 2014Q2

REPORT INFORMATION
  Report Type: Spontaneous
  Country: US (occurrence: None)
  Receive Date: 20131205
  Receipt Date: 20140604
  Transmission Date: 20141212
  Serious: Yes (Other)
  Sender: FDA-Public Use
  Company Number: 163-POMAL-13091914

PATIENT
  Age: 75 Year
  Sex: Female
  Weight: 46 kg

DRUGS (10)
  1. POMALYST (POMALIDOMIDE) (2 MILLIGRAM, CAPSULES) [Suspect]
     Indication: PLASMA CELL MYELOMA
     Dosage: 2MG, 21 IN 21 D PO
     Route: 048
     Dates: start: 20130907, end: 20130910
  2. VELCADE (BORTEZOMIB) [Concomitant]
  3. DECADRON (DEXAMETHASONE [Concomitant]
  4. ZOFRAN (ONDANSETRON HYDROCHORIDE) [Concomitant]
  5. VIT D (ERGOCALCIFEROL) [Concomitant]
  6. CYTOXAN (CYCLOPHOSPHAMIDE) [Concomitant]
  7. VALACICLOVIR (VALACICLOVIR HYDROCHLORIDE) [Concomitant]
  8. CALCIUM CARBONATE [Concomitant]
  9. VITAMIN B3 (NICOTINAMIDE) [Concomitant]
  10. BENDAMUSTINE [Concomitant]

REACTIONS (3)
  - Hypersensitivity [None]
  - Swelling [None]
  - Rash [None]
